FAERS Safety Report 4740935-3 (Version None)
Quarter: 2005Q3

REPORT INFORMATION
  Report Type: 
  Country: None (occurrence: None)
  Receive Date: 20050810
  Receipt Date: 20050801
  Transmission Date: 20060218
  Serious: Yes (Hospitalization)
  Sender: FDA-Public Use
  Company Number: JP-BRISTOL-MYERS SQUIBB COMPANY-13060728

PATIENT
  Age: 68 Year
  Sex: Male

DRUGS (9)
  1. TAXOL [Suspect]
     Indication: NON-SMALL CELL LUNG CANCER
     Route: 041
  2. WARFARIN [Concomitant]
     Route: 048
     Dates: end: 20050603
  3. AMOBAN [Concomitant]
     Route: 048
  4. ASPIRIN [Concomitant]
     Route: 048
     Dates: end: 20050603
  5. MAGMITT [Concomitant]
     Route: 048
  6. GASTER D [Concomitant]
     Route: 048
  7. ALDACTONE [Concomitant]
  8. LANIRAPID [Concomitant]
  9. LASIX [Concomitant]
     Route: 048

REACTIONS (1)
  - PNEUMOTHORAX [None]
